FAERS Safety Report 7416300-7 (Version None)
Quarter: 2011Q2

REPORT INFORMATION
  Report Type: 
  Country: None (occurrence: None)
  Receive Date: 20110414
  Receipt Date: 20110404
  Transmission Date: 20111010
  Serious: Yes (Hospitalization, Other)
  Sender: FDA-Public Use
  Company Number: FR-ELI_LILLY_AND_COMPANY-FR201104001113

PATIENT
  Sex: Male

DRUGS (8)
  1. TAHOR [Concomitant]
     Dosage: UNK
     Route: 048
     Dates: end: 20110201
  2. GEMZAR [Suspect]
     Dosage: UNK
     Route: 042
     Dates: start: 20110118, end: 20110118
  3. CISPLATIN [Concomitant]
     Indication: BLADDER CANCER
     Dosage: UNK
     Route: 042
     Dates: start: 20090501, end: 20100801
  4. ARIXTRA [Concomitant]
     Dosage: UNK
     Route: 048
     Dates: start: 20101001, end: 20110201
  5. GEMZAR [Suspect]
     Indication: BLADDER CANCER
     Dosage: UNK, OTHER
     Route: 042
     Dates: start: 20090501
  6. ROVAMYCINE [Concomitant]
     Dosage: UNK
     Dates: end: 20110205
  7. TAZOCILLINE [Concomitant]
     Dosage: UNK
     Dates: end: 20110205
  8. TAMIFLU [Concomitant]

REACTIONS (5)
  - PLEURAL EFFUSION [None]
  - BLOOD DISORDER [None]
  - EMPHYSEMA [None]
  - NEOPLASM MALIGNANT [None]
  - INTERSTITIAL LUNG DISEASE [None]
